FAERS Safety Report 15611565 (Version 3)
Quarter: 2019Q1

REPORT INFORMATION
  Report Type: Spontaneous
  Country: IR (occurrence: IR)
  Receive Date: 20181113
  Receipt Date: 20190101
  Transmission Date: 20190417
  Serious: Yes (Other)
  Sender: FDA-Public Use
  Company Number: IR-BEH-2018089934

PATIENT
  Age: 25 Year
  Sex: Female

DRUGS (3)
  1. HAEMOCOMPLETTAN P [Suspect]
     Active Substance: FIBRINOGEN HUMAN
     Indication: FACTOR I DEFICIENCY
     Dosage: 1 G, QW
     Route: 065
  2. HAEMOCOMPLETTAN P [Suspect]
     Active Substance: FIBRINOGEN HUMAN
     Dosage: 1 G, UNK
     Route: 065
  3. HAEMOCOMPLETTAN P [Suspect]
     Active Substance: FIBRINOGEN HUMAN
     Dosage: 2 G, BIW
     Route: 065

REACTIONS (1)
  - Abortion spontaneous [Unknown]
